FAERS Safety Report 13666020 (Version 3)
Quarter: 2017Q2

REPORT INFORMATION
  Report Type: Spontaneous
  Country: US (occurrence: US)
  Receive Date: 20170619
  Receipt Date: 20170629
  Transmission Date: 20170830
  Serious: Yes (Hospitalization)
  Sender: FDA-Public Use
  Company Number: US-ACTELION-A-NJ2017-155327

PATIENT
  Age: 66 Year
  Sex: Female

DRUGS (7)
  1. METOPROLOL. [Concomitant]
     Active Substance: METOPROLOL
  2. ARAVA [Concomitant]
     Active Substance: LEFLUNOMIDE
  3. SILDENAFIL. [Concomitant]
     Active Substance: SILDENAFIL
  4. DIGOXIN. [Concomitant]
     Active Substance: DIGOXIN
  5. VELETRI [Suspect]
     Active Substance: EPOPROSTENOL
     Indication: PULMONARY ARTERIAL HYPERTENSION
     Dosage: 45 NG/KG, PER MIN
     Route: 042
     Dates: start: 20170103
  6. PREDNISONE. [Concomitant]
     Active Substance: PREDNISONE
  7. LASIX [Concomitant]
     Active Substance: FUROSEMIDE

REACTIONS (11)
  - Device related infection [Recovered/Resolved]
  - Staphylococcal infection [Recovered/Resolved]
  - Staphylococcal bacteraemia [Recovered/Resolved]
  - Catheter site discharge [Recovered/Resolved]
  - White blood cell count increased [Recovered/Resolved]
  - Complication associated with device [Recovered/Resolved]
  - Catheter site erythema [Recovered/Resolved]
  - Pyrexia [Recovered/Resolved]
  - Device breakage [Recovered/Resolved]
  - Catheter management [Recovered/Resolved]
  - Blood culture positive [Recovered/Resolved]

NARRATIVE: CASE EVENT DATE: 20170527
